FAERS Safety Report 7361025-X (Version None)
Quarter: 2011Q1

REPORT INFORMATION
  Report Type: 
  Country: None (occurrence: None)
  Receive Date: 20110318
  Receipt Date: 20110310
  Transmission Date: 20110831
  Serious: Yes (Hospitalization, Other)
  Sender: FDA-Public Use
  Company Number: BR-ROCHE-736135

PATIENT
  Sex: Male
  Weight: 76 kg

DRUGS (10)
  1. SYNTHROID [Concomitant]
  2. METFORMIN HCL [Concomitant]
  3. PEGINTERFERON ALFA-2A [Suspect]
     Indication: HEPATITIS C
     Route: 058
     Dates: start: 20060101
  4. PEGINTERFERON ALFA-2A [Suspect]
     Route: 058
  5. ALDACTONE [Concomitant]
  6. LASIX [Concomitant]
  7. FOLIC ACID [Concomitant]
  8. SUPRADYN [Concomitant]
  9. PEGINTERFERON ALFA-2A [Suspect]
     Route: 058
     Dates: end: 20100101
  10. PROPRANOLOL [Concomitant]

REACTIONS (12)
  - FATIGUE [None]
  - HAEMOGLOBIN DECREASED [None]
  - WHITE BLOOD CELL COUNT DECREASED [None]
  - VARICES OESOPHAGEAL [None]
  - ASTHENIA [None]
  - IMMUNODEFICIENCY [None]
  - IRON DEFICIENCY [None]
  - DRUG INEFFECTIVE [None]
  - PLATELET COUNT DECREASED [None]
  - VARICOSE VEIN [None]
  - GASTRIC HAEMORRHAGE [None]
  - PRURITUS [None]
